FAERS Safety Report 4283603-7 (Version None)
Quarter: 2004Q1

REPORT INFORMATION
  Report Type: 
  Country: None (occurrence: None)
  Receive Date: 20040121
  Receipt Date: 20030829
  Transmission Date: 20041129
  Serious: Yes (Hospitalization)
  Sender: FDA-Public Use
  Company Number: A03200302006

PATIENT
  Age: 71 Year
  Sex: Female
  Weight: 66 kg

DRUGS (6)
  1. PLAVIX [Suspect]
     Indication: CORONARY ARTERY DISEASE
     Dosage: 75 MG QD - ORAL
     Route: 048
     Dates: start: 20010701
  2. GLUCOPHAGE [Suspect]
     Indication: DIABETES MELLITUS
     Dosage: 500 MG BID - ORAL
     Route: 048
     Dates: start: 20010304
  3. RELAFEN [Suspect]
     Indication: ARTHRITIS
     Dosage: 600 NID BID - ORAL
     Route: 048
     Dates: start: 19991016
  4. VALSARTAN - TABLET - UNIT DOSE : UNKNOWN [Suspect]
     Indication: ESSENTIAL HYPERTENSION
     Dosage: ORAL
     Route: 048
     Dates: start: 19990716
  5. AMLODIPINE [Suspect]
     Indication: ESSENTIAL HYPERTENSION
     Dosage: ORAL
     Route: 048
     Dates: start: 19990716
  6. STUDY DRUG: VALSARTAN OR AMLODIPINE WITH OR WITHOUT HYDROCHLOROTHIAZID [Concomitant]

REACTIONS (1)
  - CONSTIPATION [None]
